FAERS Safety Report 16495229 (Version 1)
Quarter: 2019Q2

REPORT INFORMATION
  Report Type: Spontaneous
  Country: FR (occurrence: FR)
  Receive Date: 20190628
  Receipt Date: 20190628
  Transmission Date: 20190711
  Serious: Yes (Death)
  Sender: FDA-Public Use
  Company Number: FR-GLAXOSMITHKLINE-FR2019116525

PATIENT
  Age: 76 Year
  Sex: Female

DRUGS (5)
  1. MICAFUNGIN. [Suspect]
     Active Substance: MICAFUNGIN SODIUM
     Dosage: 200 MG, QD (AFTER 3 WEEKS OF TREATMENT, ADMINISTERED FOR 4 WEEKS)
     Route: 042
  2. VORICONAZOLE. [Suspect]
     Active Substance: VORICONAZOLE
     Indication: SCOPULARIOPSIS INFECTION
     Dosage: 6.5 MG/L, (PLASMA CONCENTRATION)
     Route: 042
  3. AMPHOTERICIN B. [Suspect]
     Active Substance: AMPHOTERICIN B
     Indication: SCOPULARIOPSIS INFECTION
     Dosage: UNK
     Route: 065
  4. MICAFUNGIN. [Suspect]
     Active Substance: MICAFUNGIN SODIUM
     Indication: SCOPULARIOPSIS INFECTION
     Dosage: 100 MG, QD ((WAS INITIATED ASSOCIATED WITH LOCAL TERBINAFINE CREAM)HIGHDOSE)
     Route: 042
  5. TERBINAFINE. [Suspect]
     Active Substance: TERBINAFINE
     Indication: SCOPULARIOPSIS INFECTION
     Dosage: UNK
     Route: 065

REACTIONS (3)
  - Drug ineffective [Fatal]
  - Product use in unapproved indication [Unknown]
  - Off label use [Unknown]
